FAERS Safety Report 9222706 (Version 1)
Quarter: 2013Q2

REPORT INFORMATION
  Report Type: Spontaneous
  Country: FR (occurrence: FR)
  Receive Date: 20130410
  Receipt Date: 20130410
  Transmission Date: 20140414
  Serious: Yes (Hospitalization)
  Sender: FDA-Public Use
  Company Number: FR-PFIZER INC-2013113239

PATIENT
  Age: 52 Year
  Sex: Female

DRUGS (12)
  1. EUPANTOL [Suspect]
     Dosage: 40 MG, 2X/DAY
     Route: 048
  2. LYSODREN [Suspect]
     Indication: ADRENOCORTICAL CARCINOMA
     Dosage: 3 G DAILY
     Route: 048
     Dates: start: 201201, end: 20130102
  3. HYDROCORTISONE [Concomitant]
     Indication: ADDISON^S DISEASE
     Dosage: 50MG, UNK
     Route: 048
  4. OMACOR [Concomitant]
     Indication: HYPERTRIGLYCERIDAEMIA
     Dosage: 4 G, DAILY
     Route: 048
  5. LIPANTHYL [Concomitant]
     Indication: HYPERTRIGLYCERIDAEMIA
     Dosage: 160 MG, 1X/DAY
     Route: 048
     Dates: start: 2012
  6. DUROGESIC [Concomitant]
     Dosage: 12.5 MCG, DAILY
     Route: 062
  7. SEROPRAM [Concomitant]
     Dosage: 20MG, DAILY
     Route: 048
     Dates: start: 20130114
  8. ZOPHREN [Concomitant]
     Indication: DYSPEPSIA
     Dosage: 24 MG, DAILY
     Route: 048
  9. ARIXTRA [Concomitant]
     Dosage: 2.5 MG, DAILY
     Route: 058
  10. DOLIPRANE [Concomitant]
     Indication: DYSPEPSIA
     Dosage: 4G, DAILY
     Route: 048
     Dates: start: 20130114
  11. LEXOMIL [Concomitant]
     Dosage: 12 MG, DAILY
     Route: 048
     Dates: start: 20130114
  12. MOTILIUM [Concomitant]
     Dosage: 3 DF, IF REQUIRED
     Route: 048
     Dates: start: 20130114

REACTIONS (2)
  - Pancreatitis acute [Not Recovered/Not Resolved]
  - Hypertriglyceridaemia [Recovering/Resolving]
